FAERS Safety Report 7008658-8 (Version None)
Quarter: 2010Q3

REPORT INFORMATION
  Report Type: 
  Country: None (occurrence: None)
  Receive Date: 20100922
  Receipt Date: 20100914
  Transmission Date: 20110219
  Serious: Yes (Hospitalization)
  Sender: FDA-Public Use
  Company Number: US-AMGEN-KDL305988

PATIENT
  Sex: Male
  Weight: 158.9 kg

DRUGS (9)
  1. ENBREL [Suspect]
     Indication: ANKYLOSING SPONDYLITIS
     Route: 058
     Dates: start: 20080723
  2. METHOTREXATE [Concomitant]
     Route: 048
     Dates: start: 20070207
  3. BETAPACE [Concomitant]
     Dates: start: 20011129
  4. DURAGESIC-100 [Concomitant]
     Route: 062
     Dates: start: 20080318
  5. EFFEXOR [Concomitant]
     Dates: start: 20030505
  6. LASIX [Concomitant]
     Dates: start: 20011129
  7. LYRICA [Concomitant]
     Dates: start: 20080630
  8. PREDNISONE [Concomitant]
     Dates: start: 20080508
  9. VITAMIN D [Concomitant]
     Dates: start: 20080128

REACTIONS (4)
  - CELLULITIS [None]
  - GLUCOSE TOLERANCE IMPAIRED [None]
  - HOSPITALISATION [None]
  - LIMB INJURY [None]
